FAERS Safety Report 14670896 (Version 1)
Quarter: 2018Q1

REPORT INFORMATION
  Report Type: Spontaneous
  Country: US (occurrence: US)
  Receive Date: 20180321
  Receipt Date: 20180321
  Transmission Date: 20180509
  Serious: No
  Sender: FDA-Public Use
  Company Number: None

PATIENT
  Age: 51 Year
  Sex: Male

DRUGS (1)
  1. GLATIRAMER 40MG PFS INJ (12/BOX) [Suspect]
     Active Substance: GLATIRAMER

REACTIONS (7)
  - Speech disorder [None]
  - Depression [None]
  - Confusional state [None]
  - Crying [None]
  - Skin reaction [None]
  - Disorientation [None]
  - Lethargy [None]

NARRATIVE: CASE EVENT DATE: 20180316
